FAERS Safety Report 8502637-7 (Version None)
Quarter: 2012Q3

REPORT INFORMATION
  Report Type: 
  Country: None (occurrence: None)
  Receive Date: 20120711
  Receipt Date: 20120626
  Transmission Date: 20120928
  Serious: Yes (Hospitalization)
  Sender: FDA-Public Use
  Company Number: IT-PFIZER INC-2012153143

PATIENT
  Age: 65 Year
  Sex: Female

DRUGS (3)
  1. VANCOMYCIN [Suspect]
     Indication: PYREXIA
     Dosage: 2 G, 1X/DAY
     Route: 042
     Dates: start: 20120412, end: 20120501
  2. ZOVIRAX [Suspect]
     Indication: PROPHYLAXIS
     Dosage: 1.8 G, 1X/DAY
     Route: 042
     Dates: start: 20120411, end: 20120502
  3. PIPERACILLIN AND TAZOBACTAM [Suspect]
     Indication: PYREXIA
     Dosage: 13.5 MG, 1X/DAY
     Route: 042
     Dates: start: 20120409, end: 20120426

REACTIONS (1)
  - RASH MACULO-PAPULAR [None]
